FAERS Safety Report 5601419-3 (Version None)
Quarter: 2008Q1

REPORT INFORMATION
  Report Type: 
  Country: None (occurrence: None)
  Receive Date: 20080124
  Receipt Date: 20080117
  Transmission Date: 20080703
  Serious: Yes (Other)
  Sender: FDA-Public Use
  Company Number: FR-BRACCO-000011

PATIENT
  Sex: Female

DRUGS (3)
  1. IOPAMIDOL [Suspect]
     Indication: COMPUTERISED TOMOGRAM
     Route: 065
     Dates: start: 20071214, end: 20071214
  2. ATARAXOID [Concomitant]
     Route: 042
     Dates: start: 20071214, end: 20071214
  3. ATARAXOID [Concomitant]
     Route: 048
     Dates: start: 20071214, end: 20071215

REACTIONS (1)
  - ANGIOEDEMA [None]
